FAERS Safety Report 24895620 (Version 1)
Quarter: 2025Q1

REPORT INFORMATION
  Report Type: Spontaneous
  Country: NL (occurrence: NL)
  Receive Date: 20250128
  Receipt Date: 20250128
  Transmission Date: 20250409
  Serious: Yes (Other)
  Sender: TEVA
  Company Number: None

PATIENT
  Age: 42 Year
  Sex: Female
  Weight: 67 kg

DRUGS (4)
  1. AMOXICILLIN [Suspect]
     Active Substance: AMOXICILLIN
     Indication: Helicobacter infection
     Dosage: 2 X PER DAY 2 PIECES; BRAND NAME NOT SPECIFIED
     Route: 048
     Dates: start: 20241220
  2. ACENOCOUMAROL [Concomitant]
     Active Substance: ACENOCOUMAROL
     Indication: Product used for unknown indication
     Route: 048
  3. CLARITHROMYCIN [Suspect]
     Active Substance: CLARITHROMYCIN
     Indication: Helicobacter infection
     Dosage: 1 PIECE TWICE A DAY; BRAND NAME NOT SPECIFIED
     Route: 048
     Dates: start: 20241220
  4. ESOMEPRAZOLE [Concomitant]
     Active Substance: ESOMEPRAZOLE
     Indication: Product used for unknown indication
     Route: 048

REACTIONS (6)
  - Syncope [Not Recovered/Not Resolved]
  - Nausea [Not Recovered/Not Resolved]
  - Dizziness [Not Recovered/Not Resolved]
  - Dysgeusia [Not Recovered/Not Resolved]
  - Depressed mood [Recovering/Resolving]
  - Panic attack [Recovering/Resolving]
